FAERS Safety Report 17129557 (Version 4)
Quarter: 2021Q2

REPORT INFORMATION
  Report Type: Spontaneous
  Country: US (occurrence: US)
  Receive Date: 20191209
  Receipt Date: 20210528
  Transmission Date: 20210716
  Serious: No
  Sender: FDA-Public Use
  Company Number: US-PFIZER INC-2019527460

PATIENT
  Age: 71 Year
  Sex: Female

DRUGS (1)
  1. AROMASIN [Suspect]
     Active Substance: EXEMESTANE
     Indication: INTRADUCTAL PROLIFERATIVE BREAST LESION
     Dosage: 25 MG, UNK
     Dates: start: 2019

REACTIONS (5)
  - Cognitive disorder [Unknown]
  - Illness [Unknown]
  - Vomiting [Unknown]
  - Sedation [Unknown]
  - Nausea [Unknown]

NARRATIVE: CASE EVENT DATE: 2019
